FAERS Safety Report 15999646 (Version 1)
Quarter: 2019Q1

REPORT INFORMATION
  Report Type: Spontaneous
  Country: US (occurrence: US)
  Receive Date: 20190225
  Receipt Date: 20190225
  Transmission Date: 20190418
  Serious: No
  Sender: FDA-Public Use
  Company Number: US-ORPHAN EUROPE-2063141

PATIENT
  Sex: Female

DRUGS (6)
  1. FLONASE [Concomitant]
     Active Substance: FLUTICASONE PROPIONATE
  2. CYSTADANE [Suspect]
     Active Substance: BETAINE
     Indication: VITAMIN B12 DEFICIENCY
     Route: 048
  3. CYSTADANE [Suspect]
     Active Substance: BETAINE
     Route: 048
     Dates: start: 2018
  4. SYMBICORT [Concomitant]
     Active Substance: BUDESONIDE\FORMOTEROL FUMARATE DIHYDRATE
  5. LEUCOVORIN. [Concomitant]
     Active Substance: LEUCOVORIN
  6. LEVOCARNITINE. [Concomitant]
     Active Substance: LEVOCARNITINE

REACTIONS (1)
  - Headache [Not Recovered/Not Resolved]
